FAERS Safety Report 21087440 (Version 2)
Quarter: 2022Q3

REPORT INFORMATION
  Report Type: Report from Study
  Country: US (occurrence: US)
  Receive Date: 20220715
  Receipt Date: 20220817
  Transmission Date: 20221026
  Serious: Yes (Hospitalization)
  Sender: FDA-Public Use
  Company Number: US-BAYER-2022A097830

PATIENT
  Age: 58 Year
  Sex: Female
  Weight: 67.12 kg

DRUGS (1)
  1. ADEMPAS [Suspect]
     Active Substance: RIOCIGUAT
     Indication: Pulmonary arterial hypertension
     Dosage: 0.5 MG, BID
     Route: 048
     Dates: start: 20211008

REACTIONS (2)
  - Open reduction of spinal fracture [None]
  - Inappropriate schedule of product administration [None]

NARRATIVE: CASE EVENT DATE: 20220603
